FAERS Safety Report 4538590-0 (Version None)
Quarter: 2004Q4

REPORT INFORMATION
  Report Type: 
  Country: None (occurrence: None)
  Receive Date: 20041222
  Receipt Date: 20041217
  Transmission Date: 20050328
  Serious: Yes (Hospitalization)
  Sender: FDA-Public Use
  Company Number: FRWYE187709NOV04

PATIENT
  Age: 55 Year
  Sex: Female

DRUGS (12)
  1. EFFEXOR [Suspect]
     Indication: DEPRESSION
     Dosage: OVERDOSE AMOUNT UNKNOWN, ORALQ
     Route: 048
     Dates: start: 20041101, end: 20041101
  2. CLARITIN [Suspect]
     Indication: HYPERSENSITIVITY
     Dosage: 10 MG 1X PER 1 DAY, ORAL
     Route: 048
     Dates: end: 20041101
  3. IXEL (MILNACIPRAN) [Suspect]
     Dates: start: 20041101, end: 20041101
  4. KARDEGIC (ADETYLSALICYLATE LYSINE) [Suspect]
     Dates: start: 20041101, end: 20041101
  5. TEGRETOL [Suspect]
     Dates: start: 20041101, end: 20041101
  6. TENORMIN [Suspect]
     Dates: start: 20041101, end: 20041101
  7. RAMIPRIL [Suspect]
     Dates: start: 20041101, end: 20041101
  8. PRAVASTATIN [Suspect]
     Dates: start: 20041101, end: 20041101
  9. XANAX [Suspect]
     Dates: start: 20041101, end: 20041101
  10. ZOLPIDEM TARTRATE [Concomitant]
  11. LEVOTHYROXINE SODIUM [Concomitant]
  12. LYSANXIA (PRAZEPAM) [Concomitant]

REACTIONS (15)
  - AREFLEXIA [None]
  - BLOOD CREATINE PHOSPHOKINASE INCREASED [None]
  - CARDIO-RESPIRATORY ARREST [None]
  - COMA [None]
  - DRUG INTERACTION [None]
  - ELECTROCARDIOGRAM QT PROLONGED [None]
  - HYPOKALAEMIA [None]
  - HYPOTHERMIA [None]
  - JUGULAR VEIN DISTENSION [None]
  - OVERDOSE [None]
  - PUPIL FIXED [None]
  - SELF-MEDICATION [None]
  - SHOCK [None]
  - TROPONIN INCREASED [None]
  - VENTRICULAR TACHYCARDIA [None]
